FAERS Safety Report 7005246-4 (Version None)
Quarter: 2010Q3

REPORT INFORMATION
  Report Type: 
  Country: None (occurrence: None)
  Receive Date: 20100917
  Receipt Date: 20100909
  Transmission Date: 20110219
  Serious: Yes (Life-Threatening)
  Sender: FDA-Public Use
  Company Number: 018445

PATIENT
  Sex: Female

DRUGS (8)
  1. KEPPRA [Suspect]
     Indication: EPILEPSY
     Dosage: (ORAL), (SINGLE INTAKE OF 20 DF ORAL)
     Route: 048
     Dates: end: 20100205
  2. KEPPRA [Suspect]
     Indication: POISONING
     Dosage: (ORAL), (SINGLE INTAKE OF 20 DF ORAL)
     Route: 048
     Dates: end: 20100205
  3. KEPPRA [Suspect]
     Indication: EPILEPSY
     Dosage: (ORAL), (SINGLE INTAKE OF 20 DF ORAL)
     Route: 048
     Dates: start: 20100206, end: 20100206
  4. KEPPRA [Suspect]
     Indication: POISONING
     Dosage: (ORAL), (SINGLE INTAKE OF 20 DF ORAL)
     Route: 048
     Dates: start: 20100206, end: 20100206
  5. IXPRIM (IXPRIM) (NOT SPECIFIED) [Suspect]
     Indication: POISONING
     Dosage: (ORAL), (SINGLE INTAKE OF 100 DF ORAL)
     Route: 048
     Dates: end: 20100205
  6. IXPRIM (IXPRIM) (NOT SPECIFIED) [Suspect]
     Indication: RHEUMATOID ARTHRITIS
     Dosage: (ORAL), (SINGLE INTAKE OF 100 DF ORAL)
     Route: 048
     Dates: end: 20100205
  7. IXPRIM (IXPRIM) (NOT SPECIFIED) [Suspect]
     Indication: POISONING
     Dosage: (ORAL), (SINGLE INTAKE OF 100 DF ORAL)
     Route: 048
     Dates: start: 20100206, end: 20100206
  8. IXPRIM (IXPRIM) (NOT SPECIFIED) [Suspect]
     Indication: RHEUMATOID ARTHRITIS
     Dosage: (ORAL), (SINGLE INTAKE OF 100 DF ORAL)
     Route: 048
     Dates: start: 20100206, end: 20100206

REACTIONS (4)
  - HEPATITIS FULMINANT [None]
  - HYPOGLYCAEMIA [None]
  - HYPOKALAEMIA [None]
  - POISONING [None]
